FAERS Safety Report 9305167 (Version 1)
Quarter: 2013Q2

REPORT INFORMATION
  Report Type: Spontaneous
  Country: US (occurrence: None)
  Receive Date: 20130522
  Receipt Date: 20130522
  Transmission Date: 20140414
  Serious: Yes (Death)
  Sender: FDA-Public Use
  Company Number: None

PATIENT
  Age: 85 Year
  Sex: Female
  Weight: 62 kg

DRUGS (3)
  1. RIVAROXABAN 15 MG JANSSEN [Suspect]
     Indication: ATRIAL FLUTTER
     Route: 048
     Dates: start: 20130511, end: 20130513
  2. RIVAROXABAN 15 MG JANSSEN [Suspect]
     Indication: ATRIAL FIBRILLATION
     Route: 048
     Dates: start: 20130511, end: 20130513
  3. RIVAROXABAN 15 MG JANSSEN [Suspect]
     Indication: CEREBROVASCULAR ACCIDENT
     Route: 048
     Dates: start: 20130511, end: 20130513

REACTIONS (5)
  - Unresponsive to stimuli [None]
  - Cerebral haemorrhage [None]
  - Brain herniation [None]
  - Brain midline shift [None]
  - Coma [None]
